FAERS Safety Report 5206848-8 (Version None)
Quarter: 2006Q4

REPORT INFORMATION
  Report Type: 
  Country: None (occurrence: None)
  Receive Date: 20061030
  Receipt Date: 20060802
  Transmission Date: 20070319
  Serious: No
  Sender: FDA-Public Use
  Company Number: 256216

PATIENT
  Age: 54 Year
  Sex: Female
  Weight: 49.9 kg

DRUGS (2)
  1. LEVEMIR [Suspect]
     Indication: DIABETES MELLITUS INSULIN-DEPENDENT
     Dosage: 14 IU, QD, SUBCUTANEOUS
     Route: 058
     Dates: start: 20060701
  2. NOVOLOG [Suspect]
     Indication: DIABETES MELLITUS INSULIN-DEPENDENT
     Dosage: SLIDING SCALE, TID, SUBCUTANEOUS; SEE IMAGE
     Route: 058

REACTIONS (2)
  - BLOOD GLUCOSE FLUCTUATION [None]
  - MALAISE [None]
